FAERS Safety Report 8324641-4 (Version None)
Quarter: 2012Q2

REPORT INFORMATION
  Report Type: 
  Country: None (occurrence: None)
  Receive Date: 20120501
  Receipt Date: 20120424
  Transmission Date: 20120825
  Serious: Yes (Other)
  Sender: FDA-Public Use
  Company Number: GB-UCBSA-053078

PATIENT
  Age: 65 Year
  Sex: Female
  Weight: 72 kg

DRUGS (1)
  1. CIMZIA [Suspect]
     Route: 058
     Dates: start: 20111001

REACTIONS (1)
  - VULVOVAGINAL CANDIDIASIS [None]
